FAERS Safety Report 19728603 (Version 4)
Quarter: 2025Q1

REPORT INFORMATION
  Report Type: Spontaneous
  Country: US (occurrence: US)
  Receive Date: 20210820
  Receipt Date: 20250204
  Transmission Date: 20250409
  Serious: Yes (Disabling)
  Sender: MERZ
  Company Number: US-ACORDA-ACO_168026_2021

PATIENT
  Age: 73 Year
  Sex: Female

DRUGS (1)
  1. AMPYRA [Suspect]
     Active Substance: DALFAMPRIDINE
     Indication: Product used for unknown indication
     Dosage: 10 MILLIGRAM, Q 12 HRS
     Route: 048

REACTIONS (10)
  - Bedridden [Unknown]
  - Physical disability [Unknown]
  - Eye movement disorder [Unknown]
  - Dyslexia [Unknown]
  - Frustration tolerance decreased [Unknown]
  - Urinary incontinence [Unknown]
  - Psychiatric symptom [Unknown]
  - Illness [Unknown]
  - Rash [Unknown]
  - Urinary tract infection [Unknown]

NARRATIVE: CASE EVENT DATE: 20210811
